FAERS Safety Report 14124245 (Version 2)
Quarter: 2018Q1

REPORT INFORMATION
  Report Type: Spontaneous
  Country: TW (occurrence: TW)
  Receive Date: 20171025
  Receipt Date: 20180116
  Transmission Date: 20180508
  Serious: Yes (Hospitalization)
  Sender: FDA-Public Use
  Company Number: TW-PFIZER INC-2017453722

PATIENT
  Age: 73 Year
  Sex: Male

DRUGS (7)
  1. MGO [Concomitant]
     Active Substance: MAGNESIUM OXIDE
     Dosage: UNK
  2. EURICON [Concomitant]
     Dosage: UNK
  3. SUTENT [Suspect]
     Active Substance: SUNITINIB MALATE
     Indication: GASTROINTESTINAL STROMAL TUMOUR
     Dosage: 12.5 MG, 2X/DAY
     Route: 048
     Dates: start: 20170905, end: 20180111
  4. CERETAL [Concomitant]
     Dosage: UNK
  5. PROMETIN /00033002/ [Concomitant]
     Dosage: UNK
  6. INSPRA [Concomitant]
     Active Substance: EPLERENONE
     Dosage: UNK
  7. LOPID [Concomitant]
     Active Substance: GEMFIBROZIL
     Dosage: UNK

REACTIONS (4)
  - Clavicle fracture [Recovering/Resolving]
  - Neoplasm progression [Not Recovered/Not Resolved]
  - Road traffic accident [Recovering/Resolving]
  - Rib fracture [Recovering/Resolving]

NARRATIVE: CASE EVENT DATE: 20171003
